FAERS Safety Report 4572727-2 (Version None)
Quarter: 2005Q1

REPORT INFORMATION
  Report Type: 
  Country: None (occurrence: None)
  Receive Date: 20050118
  Receipt Date: 20041018
  Transmission Date: 20050727
  Serious: Yes (Hospitalization)
  Sender: FDA-Public Use
  Company Number: HQWYE879619OCT04

PATIENT
  Age: 50 Year
  Sex: Female
  Weight: 85.81 kg

DRUGS (4)
  1. PREMPRO [Suspect]
     Dosage: 0.625MG/2.5 MG THEN INCREASED
     Dates: start: 20010528, end: 20011015
  2. PREMPRO [Suspect]
     Dosage: 0.625MG/5MG DAILY, ORAL
     Route: 048
     Dates: start: 20011015, end: 20040831
  3. UNIRETIC (HYDROCHLOROTHIAZIDE/MOEXIPRIL HYDROCHLORIDE) [Concomitant]
  4. MOXONIDINE (MOXONIDINE) [Concomitant]

REACTIONS (2)
  - DEEP VEIN THROMBOSIS [None]
  - METRORRHAGIA [None]
